FAERS Safety Report 8335605-9 (Version None)
Quarter: 2012Q2

REPORT INFORMATION
  Report Type: 
  Country: None (occurrence: None)
  Receive Date: 20120504
  Receipt Date: 20120427
  Transmission Date: 20120825
  Serious: Yes (Other)
  Sender: FDA-Public Use
  Company Number: RU-BIOGENIDEC-2012BI011730

PATIENT
  Age: 47 Year
  Sex: Female
  Weight: 178 kg

DRUGS (2)
  1. PERINDOPRIL ERBUMINE [Concomitant]
     Dates: start: 20080101
  2. TYSABRI [Suspect]
     Indication: MULTIPLE SCLEROSIS
     Route: 042
     Dates: start: 20111101

REACTIONS (1)
  - RHINITIS ALLERGIC [None]
